FAERS Safety Report 18648565 (Version 1)
Quarter: 2020Q4

REPORT INFORMATION
  Report Type: Report from Study
  Country: ES (occurrence: ES)
  Receive Date: 20201222
  Receipt Date: 20201222
  Transmission Date: 20210114
  Serious: Yes (Death, Hospitalization, Other)
  Sender: FDA-Public Use
  Company Number: ES-BRISTOL-MYERS SQUIBB COMPANY-BMS-2020-017448

PATIENT
  Age: 69 Year
  Sex: Female

DRUGS (2)
  1. IMO-2125 [Suspect]
     Active Substance: TILSOTOLIMOD SODIUM
     Indication: MALIGNANT MELANOMA
     Dosage: 8 MILLIGRAM INTRATUMNORALLY IN LESION TLO1
     Route: 036
     Dates: start: 20200130, end: 20200214
  2. IPILIMUMAB [Suspect]
     Active Substance: IPILIMUMAB
     Indication: MALIGNANT MELANOMA
     Dosage: 156 MILLIGRAM
     Route: 042
     Dates: start: 20200207, end: 20200207

REACTIONS (4)
  - Malignant neoplasm progression [Fatal]
  - Dyspnoea [Fatal]
  - Pulmonary embolism [Fatal]
  - Pneumonitis [Not Recovered/Not Resolved]

NARRATIVE: CASE EVENT DATE: 20200216
